FAERS Safety Report 8416389-2 (Version None)
Quarter: 2012Q2

REPORT INFORMATION
  Report Type: 
  Country: None (occurrence: None)
  Receive Date: 20120606
  Receipt Date: 20120604
  Transmission Date: 20120825
  Serious: Yes (Hospitalization)
  Sender: FDA-Public Use
  Company Number: PHEH2012US011338

PATIENT
  Sex: Female

DRUGS (1)
  1. GILENYA [Suspect]
     Indication: MULTIPLE SCLEROSIS
     Dosage: 0.5 MG, QD
     Route: 048
     Dates: start: 20111010, end: 20120521

REACTIONS (7)
  - DECREASED APPETITE [None]
  - FEELING ABNORMAL [None]
  - VOMITING [None]
  - DRY SKIN [None]
  - HEADACHE [None]
  - ABDOMINAL PAIN UPPER [None]
  - FATIGUE [None]
